FAERS Safety Report 19874692 (Version 2)
Quarter: 2021Q4

REPORT INFORMATION
  Report Type: Spontaneous
  Country: IL (occurrence: IL)
  Receive Date: 20210923
  Receipt Date: 20211021
  Transmission Date: 20220303
  Serious: Yes (Hospitalization)
  Sender: FDA-Public Use
  Company Number: IL-VERTEX PHARMACEUTICALS-2020-014809

PATIENT
  Age: 11 Year
  Sex: Female

DRUGS (17)
  1. TRIKAFTA [Suspect]
     Active Substance: ELEXACAFTOR\IVACAFTOR\TEZACAFTOR
     Indication: Cystic fibrosis
     Dosage: 2 TABS IN AM AND 1 TAB IN PM
     Route: 048
     Dates: start: 20200701
  2. CEFTAZIDIME [Concomitant]
     Active Substance: CEFTAZIDIME
     Dosage: UNK, TID
     Route: 042
  3. TOBI [Concomitant]
     Active Substance: TOBRAMYCIN
     Dosage: UNK, BID
  4. CIPROFLOXACIN [Concomitant]
     Active Substance: CIPROFLOXACIN
     Dosage: UNK, BID
     Route: 048
  5. AZITHROMYCIN ANHYDROUS [Concomitant]
     Active Substance: AZITHROMYCIN ANHYDROUS
     Route: 048
  6. DORNASE ALFA [Concomitant]
     Active Substance: DORNASE ALFA
     Dosage: UNK, BID
  7. SODIUM CHLORIDE [Concomitant]
     Active Substance: SODIUM CHLORIDE
     Dosage: UNK, BID
  8. FLUTICASONE [Concomitant]
     Active Substance: FLUTICASONE
     Dosage: 1 UNK, BID
  9. PANCREATIN [Concomitant]
     Active Substance: PANCRELIPASE
     Route: 048
  10. LANSOPRAZOLE [Concomitant]
     Active Substance: LANSOPRAZOLE
     Route: 048
  11. CALCIUM CARBONATE [Concomitant]
     Active Substance: CALCIUM CARBONATE
     Route: 048
  12. SODIUM CHLORIDE [Concomitant]
     Active Substance: SODIUM CHLORIDE
     Route: 048
  13. LANTUS [Concomitant]
     Active Substance: INSULIN GLARGINE
  14. NOVORAPID [Concomitant]
     Active Substance: INSULIN ASPART
  15. IRON [Concomitant]
     Active Substance: IRON
     Dosage: UNK, QD
  16. CHOLECALCIFEROL [Concomitant]
     Active Substance: CHOLECALCIFEROL
     Dosage: UNK, QD
     Route: 048
  17. SERTRALINE [Concomitant]
     Active Substance: SERTRALINE HYDROCHLORIDE
     Dosage: UNK, QD
     Route: 048

REACTIONS (3)
  - Infective pulmonary exacerbation of cystic fibrosis [Recovered/Resolved]
  - Bacterial test positive [Not Recovered/Not Resolved]
  - Off label use [Unknown]

NARRATIVE: CASE EVENT DATE: 20200701
